FAERS Safety Report 12340038 (Version 1)
Quarter: 2016Q2

REPORT INFORMATION
  Report Type: Report from Study
  Country: US (occurrence: US)
  Receive Date: 20160506
  Receipt Date: 20160506
  Transmission Date: 20160815
  Serious: Yes (Other)
  Sender: FDA-Public Use
  Company Number: US-AMGEN-USASL2016055560

PATIENT
  Age: 66 Year
  Sex: Female

DRUGS (2)
  1. ENBREL [Suspect]
     Active Substance: ETANERCEPT
     Indication: PRODUCT USED FOR UNKNOWN INDICATION
     Dosage: UNK
     Route: 065
  2. METHOTREXATE [Concomitant]
     Active Substance: METHOTREXATE
     Dosage: UNK

REACTIONS (10)
  - Injection site bruising [Unknown]
  - Injection site rash [Unknown]
  - Nausea [Unknown]
  - Arthralgia [Unknown]
  - Malaise [Unknown]
  - Vision blurred [Unknown]
  - Injection site pruritus [Unknown]
  - Muscular weakness [Unknown]
  - Injection site pain [Unknown]
  - Colon cancer [Unknown]
